FAERS Safety Report 4816685-1 (Version None)
Quarter: 2005Q4

REPORT INFORMATION
  Report Type: 
  Country: None (occurrence: None)
  Receive Date: 20051101
  Receipt Date: 20051019
  Transmission Date: 20060501
  Serious: Yes (Hospitalization)
  Sender: FDA-Public Use
  Company Number: NL-AMGEN-UK155041

PATIENT
  Sex: Male

DRUGS (1)
  1. MIMPARA [Suspect]
     Indication: PRE-EXISTING DISEASE
     Route: 065
     Dates: start: 20050824, end: 20050827

REACTIONS (2)
  - NAUSEA [None]
  - VOMITING [None]
